FAERS Safety Report 4279173-X (Version None)
Quarter: 2004Q1

REPORT INFORMATION
  Report Type: 
  Country: None (occurrence: None)
  Receive Date: 20040123
  Receipt Date: 20040123
  Transmission Date: 20041129
  Serious: Yes (Life-Threatening)
  Sender: FDA-Public Use
  Company Number: None

PATIENT
  Age: 85 Year
  Sex: Female

DRUGS (1)
  1. LINEZOLID [Suspect]
     Indication: URINARY TRACT INFECTION STAPHYLOCOCCAL
     Dosage: 600 MG
     Dates: start: 20031020

REACTIONS (2)
  - DEEP VEIN THROMBOSIS [None]
  - THROMBOCYTOPENIA [None]
